FAERS Safety Report 7061502-5 (Version None)
Quarter: 2010Q4

REPORT INFORMATION
  Report Type: 
  Country: None (occurrence: None)
  Receive Date: 20101026
  Receipt Date: 20101019
  Transmission Date: 20110411
  Serious: Yes (Other)
  Sender: FDA-Public Use
  Company Number: US-PFIZER INC-2010133569

PATIENT
  Sex: Male
  Weight: 84 kg

DRUGS (6)
  1. CHANTIX [Suspect]
     Indication: SMOKING CESSATION THERAPY
     Dosage: 0.5 MG, 1X/DAY
     Route: 048
     Dates: start: 20100801, end: 20101016
  2. TOPROL-XL [Concomitant]
     Indication: HYPERTENSION
     Dosage: UNK
  3. DYAZIDE [Concomitant]
     Indication: HYPERTENSION
     Dosage: UNK
  4. LORATADINE [Concomitant]
     Indication: HYPERSENSITIVITY
     Dosage: UNK
  5. SINGULAIR ^DIECKMANN^ [Concomitant]
     Dosage: UNK
  6. COMBIVENT [Concomitant]
     Dosage: UNK

REACTIONS (2)
  - CATARACT OPERATION [None]
  - NERVOUSNESS [None]
